FAERS Safety Report 7597843-2 (Version None)
Quarter: 2011Q3

REPORT INFORMATION
  Report Type: 
  Country: None (occurrence: None)
  Receive Date: 20110708
  Receipt Date: 20110627
  Transmission Date: 20111222
  Serious: Yes (Other)
  Sender: FDA-Public Use
  Company Number: CA-JNJFOC-20110700648

PATIENT
  Sex: Female
  Weight: 68.6 kg

DRUGS (5)
  1. ALENDRONATE SODIUM [Concomitant]
  2. FERROUS SULFATE TAB [Concomitant]
  3. REMICADE [Suspect]
     Indication: COLITIS ULCERATIVE
     Route: 042
     Dates: start: 20100607
  4. PREDNISONE [Concomitant]
     Route: 048
  5. MESALAMINE [Concomitant]

REACTIONS (2)
  - DIARRHOEA [None]
  - WEIGHT DECREASED [None]
